FAERS Safety Report 11427349 (Version 1)
Quarter: 2015Q3

REPORT INFORMATION
  Report Type: Spontaneous
  Country: US (occurrence: US)
  Receive Date: 20150827
  Receipt Date: 20150827
  Transmission Date: 20151125
  Serious: No
  Sender: FDA-Public Use
  Company Number: US-SA-2015SA059282

PATIENT
  Age: 18 Year
  Sex: Female
  Weight: 104.32 kg

DRUGS (24)
  1. PROVENTIL [Concomitant]
     Active Substance: ALBUTEROL
     Dosage: DOSE:1 PUFF(S)
     Dates: start: 20140310
  2. TESSALON [Concomitant]
     Active Substance: BENZONATATE
     Dosage: THREE TIMES A DAY AS NEEDED
     Dates: start: 20150420
  3. CEFDINIR. [Concomitant]
     Active Substance: CEFDINIR
     Dates: start: 20150420
  4. EPIPEN [Concomitant]
     Active Substance: EPINEPHRINE
     Indication: ANAPHYLACTIC REACTION
     Dates: start: 20150317
  5. BUPROPION. [Concomitant]
     Active Substance: BUPROPION
     Dates: start: 20140319
  6. CYCLAFEM 1/35 [Concomitant]
     Active Substance: ETHINYL ESTRADIOL\NORETHINDRONE
     Dates: start: 20131001
  7. DIPHENHYDRAMINE. [Concomitant]
     Active Substance: DIPHENHYDRAMINE
     Indication: ANAPHYLACTIC REACTION
     Dates: start: 20150317
  8. LIDOCAINE/PRILOCAINE [Concomitant]
     Indication: PREMEDICATION
     Dates: start: 20150317
  9. SINGULAIR [Concomitant]
     Active Substance: MONTELUKAST SODIUM
     Dates: start: 20140430
  10. FLOVENT [Concomitant]
     Active Substance: FLUTICASONE PROPIONATE
     Dosage: DOSE:2 PUFF(S)
     Dates: start: 20140319
  11. TYLENOL [Concomitant]
     Active Substance: ACETAMINOPHEN
     Dates: start: 20131001
  12. ACETAMINOPHEN. [Concomitant]
     Active Substance: ACETAMINOPHEN
     Indication: PREMEDICATION
     Dosage: 2 TABLETS/CAPSULE 30 MINUTES PRIOR TO INFUSION AS NEEDED
     Dates: start: 20150317
  13. FABRAZYME [Suspect]
     Active Substance: AGALSIDASE BETA
     Indication: LIPIDOSIS
     Route: 041
     Dates: start: 20130925
  14. AMITRIPTYLINE HYDROCHLORIDE. [Concomitant]
     Active Substance: AMITRIPTYLINE HYDROCHLORIDE
     Dates: start: 20140902
  15. MELOXICAM. [Concomitant]
     Active Substance: MELOXICAM
     Dates: start: 20140319
  16. MIRALAX [Concomitant]
     Active Substance: POLYETHYLENE GLYCOL 3350
     Dates: start: 20131001
  17. ALBUTEROL SULFATE. [Concomitant]
     Active Substance: ALBUTEROL SULFATE
     Dates: start: 20150420
  18. SODIUM CHLORIDE. [Concomitant]
     Active Substance: SODIUM CHLORIDE
     Indication: FLUSHING
     Dates: start: 20150317
  19. GABAPENTIN. [Concomitant]
     Active Substance: GABAPENTIN
     Dates: start: 20140206
  20. QNASL [Concomitant]
     Active Substance: BECLOMETHASONE DIPROPIONATE
     Dosage: 2 SPRAYS DAILY
     Dates: start: 20150218
  21. NORMAL SALINE [Concomitant]
     Active Substance: SODIUM CHLORIDE
     Indication: MEDICATION DILUTION
     Dates: start: 20150317
  22. NORMAL SALINE [Concomitant]
     Active Substance: SODIUM CHLORIDE
     Indication: FLUSHING
     Dates: start: 20150317
  23. CATHFLO ACTIVASE [Concomitant]
     Active Substance: ALTEPLASE
     Dates: start: 20150317
  24. CLARITIN [Concomitant]
     Active Substance: LORATADINE
     Dates: start: 20140430

REACTIONS (3)
  - Cough [Unknown]
  - Dyspnoea [Unknown]
  - Wheezing [Unknown]

NARRATIVE: CASE EVENT DATE: 20150420
